FAERS Safety Report 16363243 (Version 2)
Quarter: 2020Q4

REPORT INFORMATION
  Report Type: Report from Study
  Country: KR (occurrence: KR)
  Receive Date: 20190528
  Receipt Date: 20201016
  Transmission Date: 20210113
  Serious: Yes (Hospitalization)
  Sender: FDA-Public Use
  Company Number: KR-NALPROPION PHARMACEUTICALS INC.-2018-005804

PATIENT

DRUGS (13)
  1. CONTRAVE [Suspect]
     Active Substance: BUPROPION HYDROCHLORIDE\NALTREXONE HYDROCHLORIDE
     Dosage: 2 TAB, BID
     Route: 048
     Dates: start: 20180803, end: 20181104
  2. ARONAMIN C PLUS [Concomitant]
     Indication: SUPPLEMENTATION THERAPY
     Dosage: 1 TAB, QD
     Route: 048
     Dates: start: 20180713, end: 20180811
  3. CONTRAVE [Suspect]
     Active Substance: BUPROPION HYDROCHLORIDE\NALTREXONE HYDROCHLORIDE
     Indication: WEIGHT CONTROL
     Dosage: 1 TAB, QD
     Route: 048
     Dates: start: 20180713, end: 20180719
  4. LIVIAL [Concomitant]
     Active Substance: TIBOLONE
     Indication: MENOPAUSAL DISORDER
     Dosage: 1 TAB, QD
     Route: 048
     Dates: start: 20180713
  5. LUTHIONE [Concomitant]
     Dosage: 1 VIAL ONCE
     Route: 042
     Dates: start: 20180810, end: 20180810
  6. LUTHIONE [Concomitant]
     Indication: FATIGUE
     Dosage: 1 VIAL ONCE
     Route: 042
     Dates: start: 20180713, end: 20180713
  7. CHOLECALCIFEROL [Concomitant]
     Active Substance: CHOLECALCIFEROL
     Indication: VITAMIN SUPPLEMENTATION
     Dosage: 1 TAB, QD
     Route: 048
     Dates: start: 20180713, end: 20180713
  8. CHOLECALCIFEROL [Concomitant]
     Active Substance: CHOLECALCIFEROL
     Dosage: 1 TAB, QD
     Route: 048
     Dates: start: 20180913, end: 20180913
  9. CONTRAVE [Suspect]
     Active Substance: BUPROPION HYDROCHLORIDE\NALTREXONE HYDROCHLORIDE
     Dosage: 1 TAB, BID
     Route: 048
     Dates: start: 20180720, end: 20180726
  10. OMACOR [Concomitant]
     Active Substance: OMEGA-3-ACID ETHYL ESTERS
     Indication: HYPERTRIGLYCERIDAEMIA
     Dosage: 1 DF, QD
     Route: 048
     Dates: start: 20180713
  11. GLUTHIONE [Concomitant]
     Indication: SUPPLEMENTATION THERAPY
     Dosage: 1 TAB, QD
     Route: 048
     Dates: start: 20180812
  12. CHOLECALCIFEROL [Concomitant]
     Active Substance: CHOLECALCIFEROL
     Dosage: 1 TAB, QD
     Route: 048
     Dates: start: 20180813, end: 20180813
  13. CONTRAVE [Suspect]
     Active Substance: BUPROPION HYDROCHLORIDE\NALTREXONE HYDROCHLORIDE
     Dosage: 3 TABS/DAY (1 TAB-DAYTIME, 2 TAB-NIGHT TIME)
     Route: 048
     Dates: start: 20180727, end: 20180802

REACTIONS (3)
  - Glucose tolerance impaired [Recovering/Resolving]
  - Rhinitis [Recovered/Resolved]
  - Intervertebral disc protrusion [Recovering/Resolving]

NARRATIVE: CASE EVENT DATE: 20180910
